FAERS Safety Report 15117093 (Version 4)
Quarter: 2024Q2

REPORT INFORMATION
  Report Type: Report from Study
  Country: IT (occurrence: IT)
  Receive Date: 20180706
  Receipt Date: 20240411
  Transmission Date: 20240716
  Serious: Yes (Hospitalization, Other)
  Sender: FDA-Public Use
  Company Number: IT-JNJFOC-20180701747

PATIENT
  Age: 61 Year
  Sex: Male
  Weight: 75 kg

DRUGS (14)
  1. SIMPONI [Suspect]
     Active Substance: GOLIMUMAB
     Indication: Colitis ulcerative
     Route: 058
     Dates: start: 20180516, end: 20180530
  2. SIMPONI [Suspect]
     Active Substance: GOLIMUMAB
     Route: 058
     Dates: start: 20180516
  3. SIMPONI [Suspect]
     Active Substance: GOLIMUMAB
     Route: 058
     Dates: start: 20180530, end: 20180622
  4. MEDROL [Concomitant]
     Active Substance: METHYLPREDNISOLONE
     Route: 065
     Dates: start: 20180105
  5. MESALAMINE [Concomitant]
     Active Substance: MESALAMINE
     Route: 065
     Dates: start: 2013
  6. CALCIUM CARBONATE\CHOLECALCIFEROL [Concomitant]
     Active Substance: CALCIUM CARBONATE\CHOLECALCIFEROL
     Route: 065
     Dates: start: 201803
  7. ESCITALOPRAM [Concomitant]
     Active Substance: ESCITALOPRAM OXALATE
     Indication: Anxiety
     Route: 065
     Dates: start: 201712
  8. PANTOPRAZOLE SODIUM [Concomitant]
     Active Substance: PANTOPRAZOLE SODIUM
     Route: 065
     Dates: start: 201712
  9. ATORVASTATIN [Concomitant]
     Active Substance: ATORVASTATIN
     Indication: Blood cholesterol increased
     Route: 065
     Dates: start: 2017
  10. ASPIRIN [Concomitant]
     Active Substance: ASPIRIN
     Indication: Myocardial infarction
     Route: 065
     Dates: start: 2013
  11. IRON [Concomitant]
     Active Substance: IRON
     Indication: Anaemia
     Route: 065
     Dates: start: 201803
  12. SERTRALINE [Concomitant]
     Active Substance: SERTRALINE HYDROCHLORIDE
     Indication: Depression
     Route: 065
     Dates: start: 201806
  13. LANSOPRAZOLE [Concomitant]
     Active Substance: LANSOPRAZOLE
     Route: 065
     Dates: start: 201806
  14. PREDNISONE [Concomitant]
     Active Substance: PREDNISONE
     Route: 065
     Dates: start: 201806

REACTIONS (5)
  - Colitis ulcerative [Recovered/Resolved]
  - Therapeutic product effect decreased [Recovered/Resolved]
  - Anaemia [Recovered/Resolved]
  - Off label use [Unknown]
  - Inappropriate schedule of product administration [Unknown]

NARRATIVE: CASE EVENT DATE: 20180516
